FAERS Safety Report 15812105 (Version 1)
Quarter: 2019Q1

REPORT INFORMATION
  Report Type: Spontaneous
  Country: US (occurrence: US)
  Receive Date: 20190111
  Receipt Date: 20190111
  Transmission Date: 20190417
  Serious: No
  Sender: FDA-Public Use
  Company Number: US-PFIZER INC-2019011719

PATIENT
  Sex: Male
  Weight: 104.33 kg

DRUGS (1)
  1. VIAGRA [Suspect]
     Active Substance: SILDENAFIL CITRATE
     Dosage: 25 MG, ONCE DAILY (ONE TIME AT NIGHT)
     Route: 048
     Dates: start: 201806

REACTIONS (2)
  - Erection increased [Unknown]
  - Ejaculation disorder [Unknown]
